FAERS Safety Report 5689573-9 (Version None)
Quarter: 2008Q1

REPORT INFORMATION
  Report Type: 
  Country: None (occurrence: None)
  Receive Date: 20080331
  Receipt Date: 20080326
  Transmission Date: 20080703
  Serious: Yes (Hospitalization)
  Sender: FDA-Public Use
  Company Number: FR-MERCK-0803FRA00049

PATIENT
  Age: 94 Year
  Sex: Female

DRUGS (5)
  1. NOROXIN [Suspect]
     Indication: URINARY TRACT INFECTION
     Route: 048
     Dates: start: 20071229, end: 20080104
  2. AMIODARONE HYDROCHLORIDE [Concomitant]
     Route: 048
  3. FUROSEMIDE [Concomitant]
     Route: 048
     Dates: start: 20071228
  4. CLOPIDOGREL BISULFATE [Concomitant]
     Route: 048
  5. ESOMEPRAZOLE MAGNESIUM [Concomitant]
     Route: 048

REACTIONS (2)
  - ACUTE GENERALISED EXANTHEMATOUS PUSTULOSIS [None]
  - PYREXIA [None]
